FAERS Safety Report 19221514 (Version 1)
Quarter: 2021Q2

REPORT INFORMATION
  Report Type: Spontaneous
  Country: US (occurrence: US)
  Receive Date: 20210506
  Receipt Date: 20210506
  Transmission Date: 20210717
  Serious: Yes (Life-Threatening, Hospitalization, Other)
  Sender: FDA-Public Use
  Company Number: US-DRREDDYS-USA/USA/21/0135126

PATIENT
  Age: 37 Year
  Sex: Female

DRUGS (1)
  1. HEPARIN SODIUM. [Suspect]
     Active Substance: HEPARIN SODIUM
     Indication: ANTICOAGULANT THERAPY

REACTIONS (5)
  - Haemorrhagic transformation stroke [Recovering/Resolving]
  - Cerebrovascular accident [Recovering/Resolving]
  - Peripheral artery occlusion [Recovering/Resolving]
  - Carotid artery occlusion [Recovering/Resolving]
  - Heparin-induced thrombocytopenia [Recovering/Resolving]
